FAERS Safety Report 9617977 (Version 1)
Quarter: 2013Q4

REPORT INFORMATION
  Report Type: Spontaneous
  Country: DE (occurrence: DE)
  Receive Date: 20131011
  Receipt Date: 20131011
  Transmission Date: 20140711
  Serious: Yes (Congenital Anomaly)
  Sender: FDA-Public Use
  Company Number: DE-WATSON-2013-18433

PATIENT
  Age: 1 Day
  Sex: Male
  Weight: 3.25 kg

DRUGS (3)
  1. CITALOPRAM (UNKNOWN) [Suspect]
     Indication: DEPRESSION
     Dosage: 40-60 MG/D, UNKNOWN
     Route: 064
  2. PARACETAMOL [Concomitant]
     Indication: PAIN
     Dosage: UNK, UNK
     Route: 064
  3. FEMIBION [Concomitant]
     Indication: PROPHYLAXIS OF NEURAL TUBE DEFECT
     Dosage: 0.4 MG, DAILY
     Route: 064

REACTIONS (3)
  - Choanal atresia [Recovered/Resolved with Sequelae]
  - Hydrocele [Recovering/Resolving]
  - Foetal exposure during pregnancy [Recovered/Resolved with Sequelae]
